FAERS Safety Report 5501463-0 (Version None)
Quarter: 2007Q4

REPORT INFORMATION
  Report Type: 
  Country: None (occurrence: None)
  Receive Date: 20071023
  Receipt Date: 20060809
  Transmission Date: 20080405
  Serious: Yes (Hospitalization, Other)
  Sender: FDA-Public Use
  Company Number: 29694

PATIENT
  Age: 46 Year
  Sex: Male

DRUGS (9)
  1. CYTARABINE [Suspect]
     Indication: CHRONIC LYMPHOCYTIC LEUKAEMIA
     Dosage: 1G/M2 IV DAY 2-3
     Dates: start: 20060707, end: 20060712
  2. BACTRIM DS [Suspect]
     Dosage: 1 TABLET DAILY M,W,F
  3. VALCYTE [Suspect]
     Dosage: 900MG DAILY
  4. PROTONIX [Suspect]
     Dosage: DAILY
  5. OXALIPLATIN [Suspect]
  6. RITUXAN [Suspect]
     Dosage: 375 MG/IV2 IV DAY 3
     Route: 042
  7. CYTARABINE [Suspect]
     Dosage: 1G/M2 IV DAY 2-3
     Route: 042
  8. FLUDARABINE PHOSPHATE [Suspect]
     Dosage: 30  MG/M2 DAYS 2-3
  9. PEG-FILGRASTIM 6 MG SQ DAY 5 [Suspect]

REACTIONS (1)
  - PYREXIA [None]
